FAERS Safety Report 15461162 (Version 1)
Quarter: 2018Q4

REPORT INFORMATION
  Report Type: Spontaneous
  Country: US (occurrence: US)
  Receive Date: 20181003
  Receipt Date: 20181003
  Transmission Date: 20190204
  Serious: No
  Sender: FDA-Public Use
  Company Number: US-009507513-1810USA001146

PATIENT
  Sex: Female
  Weight: 230 kg

DRUGS (2)
  1. NEXPLANON [Suspect]
     Active Substance: ETONOGESTREL
     Indication: CONTRACEPTION
     Dosage: 1 DF, EVERY 3 YEARS
     Route: 059
     Dates: start: 20150626
  2. VITAMINS (UNSPECIFIED) [Concomitant]
     Active Substance: VITAMINS

REACTIONS (8)
  - Dyspnoea [Unknown]
  - Memory impairment [Unknown]
  - Incorrect product administration duration [Unknown]
  - Complication associated with device [Unknown]
  - Hypoaesthesia [Unknown]
  - Feeling abnormal [Unknown]
  - Chest pain [Unknown]
  - Pain [Unknown]
